FAERS Safety Report 4799826-4 (Version None)
Quarter: 2005Q4

REPORT INFORMATION
  Report Type: 
  Country: None (occurrence: None)
  Receive Date: 20051013
  Receipt Date: 20050919
  Transmission Date: 20060501
  Serious: Yes (Death, Life-Threatening, Hospitalization)
  Sender: FDA-Public Use
  Company Number: IMP_0939_2005

PATIENT
  Age: 18 Year
  Sex: Female

DRUGS (2)
  1. BUPROPION HCL [Suspect]
     Indication: DEPRESSION
     Dosage: DF PO
     Route: 048
  2. LYSERGIC ACID DIETHYLAMIDE [Suspect]
     Dosage: DF

REACTIONS (15)
  - AUTONOMIC NERVOUS SYSTEM IMBALANCE [None]
  - BLOOD PRESSURE INCREASED [None]
  - BODY TEMPERATURE INCREASED [None]
  - CONVULSION [None]
  - HYPERTENSION [None]
  - HYPOTENSION [None]
  - INCOHERENT [None]
  - INTENTIONAL DRUG MISUSE [None]
  - LOSS OF CONSCIOUSNESS [None]
  - PUPIL FIXED [None]
  - PUPILS UNEQUAL [None]
  - RESPIRATORY FAILURE [None]
  - STATUS EPILEPTICUS [None]
  - TACHYCARDIA [None]
  - THERAPY NON-RESPONDER [None]
